FAERS Safety Report 4520153-4 (Version None)
Quarter: 2004Q4

REPORT INFORMATION
  Report Type: 
  Country: None (occurrence: None)
  Receive Date: 20041029
  Receipt Date: 20040719
  Transmission Date: 20050328
  Serious: No
  Sender: FDA-Public Use
  Company Number: WAES 0309USA00454

PATIENT
  Sex: Female

DRUGS (5)
  1. EMEND [Suspect]
     Indication: PROPHYLAXIS OF NAUSEA AND VOMITING
     Dosage: 125 MG/1X/PO;  80 MG/DAILY/PO; 125 MG/1X/PO;  80 MG/DAILY/PO
     Route: 048
     Dates: start: 20030529, end: 20030529
  2. EMEND [Suspect]
     Indication: PROPHYLAXIS OF NAUSEA AND VOMITING
     Dosage: 125 MG/1X/PO;  80 MG/DAILY/PO; 125 MG/1X/PO;  80 MG/DAILY/PO
     Route: 048
     Dates: start: 20030530, end: 20030531
  3. EMEND [Suspect]
     Indication: PROPHYLAXIS OF NAUSEA AND VOMITING
     Dosage: 125 MG/1X/PO;  80 MG/DAILY/PO; 125 MG/1X/PO;  80 MG/DAILY/PO
     Route: 048
     Dates: start: 20030101, end: 20030731
  4. EMEND [Suspect]
     Indication: PROPHYLAXIS OF NAUSEA AND VOMITING
     Dosage: 125 MG/1X/PO;  80 MG/DAILY/PO; 125 MG/1X/PO;  80 MG/DAILY/PO
     Route: 048
     Dates: start: 20030101, end: 20030731
  5. DECADRON [Concomitant]

REACTIONS (2)
  - NERVOUSNESS [None]
  - TREMOR [None]
